FAERS Safety Report 12722755 (Version 1)
Quarter: 2016Q3

REPORT INFORMATION
  Report Type: Spontaneous
  Country: US (occurrence: US)
  Receive Date: 20160907
  Receipt Date: 20160907
  Transmission Date: 20161109
  Serious: Yes (Hospitalization)
  Sender: FDA-Public Use
  Company Number: US-BAUSCH-BL-2016-021630

PATIENT
  Sex: Female

DRUGS (3)
  1. DESMOPRESSIN [Suspect]
     Active Substance: DESMOPRESSIN
     Indication: POLYURIA
     Route: 048
  2. LANSOPRAZOLE. [Concomitant]
     Active Substance: LANSOPRAZOLE
     Indication: PRODUCT USED FOR UNKNOWN INDICATION
  3. DESMOPRESSIN [Suspect]
     Active Substance: DESMOPRESSIN
     Indication: INCONTINENCE

REACTIONS (2)
  - Cerebral venous thrombosis [Recovering/Resolving]
  - Hyperthyroidism [Recovering/Resolving]
